FAERS Safety Report 22287067 (Version 1)
Quarter: 2023Q2

REPORT INFORMATION
  Report Type: Spontaneous
  Country: US (occurrence: US)
  Receive Date: 20230505
  Receipt Date: 20230505
  Transmission Date: 20230721
  Serious: No
  Sender: FDA-Public Use
  Company Number: US-SA-SAC20230502000133

PATIENT
  Age: 47 Year
  Sex: Female

DRUGS (4)
  1. DUPIXENT [Suspect]
     Active Substance: DUPILUMAB
     Indication: Dermatitis atopic
     Dosage: 300 MG, QOW
     Route: 058
     Dates: start: 202301
  2. COCONUT OIL [Concomitant]
     Active Substance: COCONUT OIL
     Dosage: UNK
  3. PETROLATUM [Concomitant]
     Active Substance: PETROLATUM
     Dosage: UNK
  4. CERAVE ECZEMA CREAMY OIL [Concomitant]
     Dosage: UNK

REACTIONS (2)
  - Fear of injection [Unknown]
  - Pruritus [Unknown]

NARRATIVE: CASE EVENT DATE: 20230101
